FAERS Safety Report 13008796 (Version 2)
Quarter: 2016Q4

REPORT INFORMATION
  Report Type: Spontaneous
  Country: US (occurrence: US)
  Receive Date: 20161208
  Receipt Date: 20161216
  Transmission Date: 20170207
  Serious: No
  Sender: FDA-Public Use
  Company Number: US-BRISTOL-MYERS SQUIBB COMPANY-BMS-2016-104481

PATIENT
  Age: 6 Year
  Sex: Male

DRUGS (1)
  1. ABILIFY [Suspect]
     Active Substance: ARIPIPRAZOLE
     Indication: AUTISM
     Dosage: 2 MG, QD
     Route: 048
     Dates: start: 201610

REACTIONS (5)
  - Fatigue [Recovered/Resolved]
  - Therapeutic response unexpected [Unknown]
  - Product use issue [Unknown]
  - Anxiety [Unknown]
  - Wrong technique in product usage process [Unknown]
